FAERS Safety Report 5248153-X (Version None)
Quarter: 2007Q1

REPORT INFORMATION
  Report Type: 
  Country: None (occurrence: None)
  Receive Date: 20070227
  Receipt Date: 20060329
  Transmission Date: 20070707
  Serious: No
  Sender: FDA-Public Use
  Company Number: US-BRISTOL-MYERS SQUIBB COMPANY-13330659

PATIENT
  Age: 61 Year
  Sex: Female
  Weight: 77 kg

DRUGS (7)
  1. GLUCOPHAGE [Suspect]
  2. LEVOTHYROXINE SODIUM [Concomitant]
  3. B12 [Concomitant]
  4. B6 [Concomitant]
  5. LECITHIN [Concomitant]
  6. FOLIC ACID [Concomitant]
  7. GREEN TEA [Concomitant]

REACTIONS (1)
  - BLOOD GLUCOSE INCREASED [None]
